FAERS Safety Report 7163706-X (Version None)
Quarter: 2010Q4

REPORT INFORMATION
  Report Type: 
  Country: None (occurrence: None)
  Receive Date: 20101215
  Receipt Date: 20100531
  Transmission Date: 20110411
  Serious: Yes (Death)
  Sender: FDA-Public Use
  Company Number: FR-PFIZER INC-2010061264

PATIENT
  Age: 79 Year
  Sex: Male

DRUGS (12)
  1. LYRICA [Suspect]
     Indication: SCIATICA
     Dosage: 75 MG, 4X/DAY
     Route: 048
     Dates: start: 20090630, end: 20090728
  2. PARACETAMOL [Suspect]
     Indication: SCIATICA
     Dosage: 1 G, 4X/DAY
     Route: 048
     Dates: start: 20090625, end: 20090630
  3. IBUPROFEN [Suspect]
     Indication: SCIATICA
     Dosage: 400 MG, 3X/DAY
     Route: 048
     Dates: start: 20090605, end: 20090630
  4. CONTRAMAL [Suspect]
     Indication: SCIATICA
     Dosage: 50X2 PER DAY, 400X3 PER DAY
     Route: 048
     Dates: start: 20090625, end: 20090630
  5. LAMALINE [Suspect]
     Indication: SCIATICA
     Dosage: 2 DF, 2X/DAY
     Route: 048
     Dates: start: 20090630, end: 20090728
  6. OMEPRAZOLE [Suspect]
     Dosage: 20 MG, 1X/DAY
     Route: 048
     Dates: start: 20090625, end: 20090630
  7. AUGMENTIN [Suspect]
     Indication: PNEUMONIA
     Dosage: 1 G, 3X/DAY
     Route: 042
     Dates: start: 20090801, end: 20090803
  8. OFLOCET [Suspect]
     Indication: PNEUMONIA
     Dosage: 1 DF, 2X/DAY
     Route: 042
     Dates: start: 20090801, end: 20090803
  9. VOLTAREN [Concomitant]
     Indication: SCIATICA
     Dosage: 1 DF, 1X/DAY
     Route: 030
     Dates: start: 20090620, end: 20090623
  10. ACUPAN [Concomitant]
     Indication: SCIATICA
     Dosage: 1 DF, 1X/DAY
     Route: 030
     Dates: start: 20090620, end: 20090623
  11. NIFEDIPINE [Concomitant]
     Indication: HYPERTENSION
     Dosage: UNK
     Route: 048
     Dates: start: 20050101, end: 20090803
  12. KARDEGIC [Concomitant]
     Indication: PERIPHERAL ARTERIAL OCCLUSIVE DISEASE
     Dosage: 75 MG, 1X/DAY
     Route: 048
     Dates: start: 20050101, end: 20090803

REACTIONS (3)
  - COMA HEPATIC [None]
  - CYTOLYTIC HEPATITIS [None]
  - DIARRHOEA [None]
